FAERS Safety Report 20705229 (Version 1)
Quarter: 2022Q2

REPORT INFORMATION
  Report Type: Spontaneous
  Country: US (occurrence: None)
  Receive Date: 20220412
  Receipt Date: 20220412
  Transmission Date: 20220721
  Serious: Yes (Death)
  Sender: FDA-Public Use
  Company Number: None

PATIENT
  Age: 68 Year
  Sex: Female
  Weight: 98.4 kg

DRUGS (1)
  1. TAXOL [Suspect]
     Active Substance: PACLITAXEL
     Indication: Breast cancer stage III
     Dosage: OTHER FREQUENCY : EVERY 3 WEEKS;?
     Route: 042
     Dates: start: 20220321, end: 20220411

REACTIONS (7)
  - Nausea [None]
  - Blood pressure immeasurable [None]
  - Unresponsive to stimuli [None]
  - Pulse absent [None]
  - Cyanosis [None]
  - Atrial thrombosis [None]
  - Ejection fraction decreased [None]

NARRATIVE: CASE EVENT DATE: 20220411
